FAERS Safety Report 5149380-2 (Version None)
Quarter: 2006Q4

REPORT INFORMATION
  Report Type: 
  Country: None (occurrence: None)
  Receive Date: 20061113
  Receipt Date: 20051207
  Transmission Date: 20070319
  Serious: No
  Sender: FDA-Public Use
  Company Number: 427931

PATIENT
  Age: 54 Year
  Sex: Female

DRUGS (6)
  1. COREG [Suspect]
     Indication: HYPERTENSION
     Dosage: 3.125MG TWICE PER DAY
     Route: 048
     Dates: start: 20041123
  2. LOTREL [Concomitant]
  3. LASIX [Concomitant]
  4. LEVOXYL [Concomitant]
  5. SUBOXONE [Concomitant]
  6. POTASSIUM ACETATE [Concomitant]

REACTIONS (4)
  - DIZZINESS [None]
  - NAUSEA [None]
  - OEDEMA [None]
  - VOMITING [None]
